FAERS Safety Report 8512645-8 (Version None)
Quarter: 2012Q2

REPORT INFORMATION
  Report Type: 
  Country: None (occurrence: None)
  Receive Date: 20120405
  Receipt Date: 20090303
  Transmission Date: 20120825
  Serious: Yes (Disabling)
  Sender: FDA-Public Use
  Company Number: PHEH2008US10933

PATIENT
  Age: 73 Year
  Sex: Female

DRUGS (6)
  1. RELAFEN [Concomitant]
  2. RECLAST [Suspect]
     Indication: OSTEOPOROSIS
     Dosage: 5 MG, ONCE, INFUSION
     Dates: start: 20081016, end: 20081016
  3. LOTENSIN [Concomitant]
  4. SYNTHROID [Concomitant]
  5. CALCITONIN (CALCITONIN) [Concomitant]
  6. ESTRADIOL [Concomitant]

REACTIONS (7)
  - BONE PAIN [None]
  - MUSCULOSKELETAL PAIN [None]
  - MYALGIA [None]
  - ARTHRALGIA [None]
  - PARAESTHESIA [None]
  - ASTHENIA [None]
  - MIDDLE INSOMNIA [None]
